FAERS Safety Report 24309854 (Version 3)
Quarter: 2025Q1

REPORT INFORMATION
  Report Type: Spontaneous
  Country: US (occurrence: US)
  Receive Date: 20240912
  Receipt Date: 20250103
  Transmission Date: 20250409
  Serious: No
  Sender: GLAUKOS
  Company Number: US-GLK-002373

PATIENT
  Age: 76 Year
  Sex: Female

DRUGS (3)
  1. IDOSE TR [Suspect]
     Active Substance: TRAVOPROST
     Indication: Open angle glaucoma
     Dates: start: 20240814, end: 20240814
  2. LUMIGAN [Concomitant]
     Active Substance: BIMATOPROST
  3. Imprimis [Concomitant]

REACTIONS (5)
  - Vision blurred [Unknown]
  - Anterior chamber inflammation [Not Recovered/Not Resolved]
  - Mydriasis [Unknown]
  - Visual acuity reduced [Unknown]
  - Iritis [Not Recovered/Not Resolved]

NARRATIVE: CASE EVENT DATE: 20240815
